FAERS Safety Report 8974756 (Version 2)
Quarter: 2013Q1

REPORT INFORMATION
  Report Type: Spontaneous
  Country: US (occurrence: US)
  Receive Date: 20121219
  Receipt Date: 20130304
  Transmission Date: 20140127
  Serious: Yes (Other)
  Sender: FDA-Public Use
  Company Number: US-PFIZER INC-2012320930

PATIENT
  Age: 78 Year
  Sex: Female
  Weight: 65.76 kg

DRUGS (7)
  1. DILANTIN [Suspect]
     Indication: MULTIPLE SCLEROSIS
     Dosage: 300 MG, 1X/DAY
     Route: 048
  2. DILANTIN KAPSEAL [Suspect]
     Indication: CONVULSION
     Dosage: 100 MG, 1X/DAY
  3. DILANTIN KAPSEAL [Suspect]
     Indication: MULTIPLE SCLEROSIS
  4. ARMOUR THYROID [Concomitant]
     Dosage: 30 MG, TAKE 5 TABLETS EVERY DAY
  5. DIPYRIDAMOLE [Concomitant]
     Dosage: 25 MG, 1X/DAY
     Route: 048
  6. FIORICET [Concomitant]
     Dosage: 50 MG-325 MG-40 MG TAB 1/4 TAB 2 TO 3 XQD PRN
  7. FLAXSEED [Concomitant]
     Dosage: 1 TEA THREE TIME DAILY

REACTIONS (22)
  - Thyroid cancer [Recovered/Resolved]
  - Nasal septum disorder [Unknown]
  - Dyspnoea [Unknown]
  - Oral neoplasm [Unknown]
  - Hypothyroidism [Unknown]
  - Hyperlipidaemia [Recovered/Resolved]
  - Hypoglycaemia [Unknown]
  - Osteoporosis [Unknown]
  - Thoracic vertebral fracture [Unknown]
  - Cerebrovascular accident [Unknown]
  - Balance disorder [Unknown]
  - Fall [Unknown]
  - Body height decreased [Unknown]
  - Weight fluctuation [Unknown]
  - Off label use [Unknown]
  - Dizziness [Unknown]
  - Nervousness [Unknown]
  - Tremor [Unknown]
  - Fatigue [Unknown]
  - Menopause [Unknown]
  - Arrhythmia [Unknown]
  - Oedema peripheral [Unknown]
